FAERS Safety Report 15138162 (Version 4)
Quarter: 2018Q4

REPORT INFORMATION
  Report Type: Report from Study
  Country: None (occurrence: US)
  Receive Date: 20180713
  Receipt Date: 20181108
  Transmission Date: 20190204
  Serious: Yes (Other)
  Sender: FDA-Public Use
  Company Number: US-ABBVIE-18K-163-2333157-00

PATIENT
  Age: 56 Year
  Sex: Female

DRUGS (2)
  1. METHOTREXATE. [Suspect]
     Active Substance: METHOTREXATE
     Indication: PRODUCT USED FOR UNKNOWN INDICATION
     Route: 065
     Dates: start: 2018
  2. HUMIRA [Suspect]
     Active Substance: ADALIMUMAB
     Indication: RHEUMATOID ARTHRITIS
     Route: 058
     Dates: start: 20180406, end: 201810

REACTIONS (17)
  - Gait disturbance [Recovering/Resolving]
  - Musculoskeletal stiffness [Not Recovered/Not Resolved]
  - Muscular weakness [Unknown]
  - Skin abrasion [Unknown]
  - Upper respiratory tract infection [Unknown]
  - Dyspnoea [Unknown]
  - Drug ineffective [Unknown]
  - Joint stiffness [Unknown]
  - Fall [Unknown]
  - Lip pain [Unknown]
  - Therapeutic response shortened [Unknown]
  - Malignant polyp [Unknown]
  - Joint swelling [Unknown]
  - Frustration tolerance decreased [Unknown]
  - Arthralgia [Unknown]
  - Loss of personal independence in daily activities [Recovering/Resolving]
  - Pruritus [Unknown]

NARRATIVE: CASE EVENT DATE: 2018
